FAERS Safety Report 10953470 (Version 1)
Quarter: 2015Q1

REPORT INFORMATION
  Report Type: Spontaneous
  Country: US (occurrence: None)
  Receive Date: 20150226
  Receipt Date: 20150226
  Transmission Date: 20150721
  Serious: No
  Sender: FDA-Public Use
  Company Number: TPA2010A04463

PATIENT
  Age: 57 Year
  Sex: Male
  Weight: 120.2 kg

DRUGS (7)
  1. ZETIA 9EXETIMIBE [Concomitant]
  2. ATENOLOL. [Concomitant]
     Active Substance: ATENOLOL
  3. ALLOPURINOL. [Concomitant]
     Active Substance: ALLOPURINOL
  4. GEMFIBROZIL. [Concomitant]
     Active Substance: GEMFIBROZIL
  5. SYMBICORT (BUDESONIDE) [Concomitant]
  6. ULORIC [Suspect]
     Active Substance: FEBUXOSTAT
     Indication: GOUT
     Dosage: 2 IN 1 DAY
     Route: 048
     Dates: start: 201004
  7. ATACAND [Concomitant]
     Active Substance: CANDESARTAN CILEXETIL

REACTIONS (4)
  - Skin ulcer [None]
  - Skin disorder [None]
  - Blister [None]
  - Dyspnoea [None]
